FAERS Safety Report 8270713-2 (Version None)
Quarter: 2012Q2

REPORT INFORMATION
  Report Type: 
  Country: None (occurrence: None)
  Receive Date: 20120410
  Receipt Date: 20120326
  Transmission Date: 20120825
  Serious: Yes (Hospitalization)
  Sender: FDA-Public Use
  Company Number: JP-ROCHE-1048620

PATIENT
  Sex: Female
  Weight: 57 kg

DRUGS (2)
  1. ACETAMINOPHEN [Concomitant]
     Route: 048
     Dates: start: 20120213
  2. TAMIFLU [Suspect]
     Indication: INFLUENZA
     Route: 048
     Dates: start: 20120213

REACTIONS (2)
  - MATERNAL EXPOSURE DURING PREGNANCY [None]
  - ABORTION MISSED [None]
